FAERS Safety Report 6235986-6 (Version None)
Quarter: 2009Q2

REPORT INFORMATION
  Report Type: 
  Country: None (occurrence: None)
  Receive Date: 20090617
  Receipt Date: 20090617
  Transmission Date: 20091009
  Serious: No
  Sender: FDA-Public Use
  Company Number: None

PATIENT
  Age: 53 Year
  Sex: Female
  Weight: 68.0396 kg

DRUGS (1)
  1. ZICAM NO-DRIP LIQUID NASAL GEL ZINCUM GLUCONICUM 2X ZICAM LLC -SUB. OF [Suspect]
     Indication: NASOPHARYNGITIS
     Dosage: 1 PUMP NASAL
     Route: 045
     Dates: start: 20070215, end: 20070216

REACTIONS (4)
  - AGEUSIA [None]
  - ANOSMIA [None]
  - NASAL DISCOMFORT [None]
  - SNEEZING [None]
